FAERS Safety Report 8069708-3 (Version None)
Quarter: 2012Q1

REPORT INFORMATION
  Report Type: 
  Country: None (occurrence: None)
  Receive Date: 20120125
  Receipt Date: 20110314
  Transmission Date: 20120608
  Serious: No
  Sender: FDA-Public Use
  Company Number: US-PFIZER INC-2011US-43156

PATIENT
  Age: 39 Year
  Sex: Female

DRUGS (2)
  1. CALAN [Suspect]
     Indication: MIGRAINE
     Dosage: 180 MG, 1X/DAY
     Route: 048
  2. VERAPAMIL [Suspect]
     Indication: MIGRAINE
     Dosage: UNK
     Route: 048

REACTIONS (1)
  - MATERNAL EXPOSURE DURING PREGNANCY [None]
